FAERS Safety Report 23348636 (Version 1)
Quarter: 2023Q4

REPORT INFORMATION
  Report Type: Spontaneous
  Country: SE (occurrence: SE)
  Receive Date: 20231229
  Receipt Date: 20231229
  Transmission Date: 20240110
  Serious: Yes (Other)
  Sender: FDA-Public Use
  Company Number: SE-STRIDES ARCOLAB LIMITED-2023SP018980

PATIENT

DRUGS (20)
  1. ZOLPIDEM [Suspect]
     Active Substance: ZOLPIDEM TARTRATE
     Indication: Product used for unknown indication
     Dosage: UNK (MOTHER RECEIVED 10 MILLIGRAM, NIGHTLY)
     Route: 064
  2. PROMETHAZINE HYDROCHLORIDE [Suspect]
     Active Substance: PROMETHAZINE HYDROCHLORIDE
     Indication: Product used for unknown indication
     Dosage: UNK (MOTHER RECEIVED 25 MG)
     Route: 064
  3. OLANZAPINE [Suspect]
     Active Substance: OLANZAPINE
     Indication: Product used for unknown indication
     Dosage: UNK (MOTHER RECEIVED 2.5 MG BID)
     Route: 064
  4. OLANZAPINE [Suspect]
     Active Substance: OLANZAPINE
     Dosage: UNK (MOTHER RECEIVED 7.5 MG PER DAY)
     Route: 064
  5. OLANZAPINE [Suspect]
     Active Substance: OLANZAPINE
     Dosage: UNK (MOTHER RECEIVED 5 MG BID)
     Route: 064
  6. OLANZAPINE [Suspect]
     Active Substance: OLANZAPINE
     Dosage: UNK (MOTHER RECEIVED 10 MG PER DAY)
     Route: 064
  7. FUROSEMIDE [Suspect]
     Active Substance: FUROSEMIDE
     Indication: Product used for unknown indication
     Dosage: UNK
     Route: 064
  8. VENLAFAXINE [Suspect]
     Active Substance: VENLAFAXINE HYDROCHLORIDE
     Indication: Product used for unknown indication
     Dosage: UNK
     Route: 064
  9. VENLAFAXINE [Suspect]
     Active Substance: VENLAFAXINE HYDROCHLORIDE
     Dosage: UNK (MOTHER RECEIVED 187.5 PER DAY)
     Route: 064
  10. VENLAFAXINE [Suspect]
     Active Substance: VENLAFAXINE HYDROCHLORIDE
     Dosage: UNK (MOTHER RECEIVED 225 MG PER DAY)
     Route: 064
  11. LAMOTRIGINE [Suspect]
     Active Substance: LAMOTRIGINE
     Indication: Product used for unknown indication
     Dosage: UNK
     Route: 064
  12. LAMOTRIGINE [Suspect]
     Active Substance: LAMOTRIGINE
     Dosage: UNK (MOTHER RECEIVED 25 MG PER DAY)
     Route: 064
  13. LAMOTRIGINE [Suspect]
     Active Substance: LAMOTRIGINE
     Dosage: UNK (MOTHER RECEIVED 150 MG PER DAY)
     Route: 064
  14. QUETIAPINE [Suspect]
     Active Substance: QUETIAPINE
     Indication: Product used for unknown indication
     Dosage: UNK (25 MG NIGHTLY, DURATION 10 DAYS)
     Route: 064
  15. OXAZEPAM [Suspect]
     Active Substance: OXAZEPAM
     Indication: Product used for unknown indication
     Dosage: UNK (MOTHER RECEIVED 10 MG)
     Route: 064
  16. MAGNESIUM SULFATE [Suspect]
     Active Substance: MAGNESIUM SULFATE\MAGNESIUM SULFATE HEPTAHYDRATE
     Indication: Product used for unknown indication
     Dosage: UNK
     Route: 064
  17. LABETALOL [Suspect]
     Active Substance: LABETALOL\LABETALOL HYDROCHLORIDE
     Indication: Product used for unknown indication
     Dosage: UNK
     Route: 064
  18. NIFEDIPINE [Suspect]
     Active Substance: NIFEDIPINE
     Indication: Product used for unknown indication
     Dosage: UNK
     Route: 064
  19. CLONIDINE [Suspect]
     Active Substance: CLONIDINE
     Indication: Product used for unknown indication
     Dosage: UNK
     Route: 064
  20. ONDANSETRON [Suspect]
     Active Substance: ONDANSETRON
     Indication: Product used for unknown indication
     Dosage: UNK (MOTHER RECEIVED 4 MG)
     Route: 064

REACTIONS (3)
  - Premature baby [Unknown]
  - Low birth weight baby [Unknown]
  - Foetal exposure during pregnancy [Unknown]
